FAERS Safety Report 16164381 (Version 2)
Quarter: 2019Q2

REPORT INFORMATION
  Report Type: Spontaneous
  Country: US (occurrence: US)
  Receive Date: 20190405
  Receipt Date: 20190425
  Transmission Date: 20190711
  Serious: No
  Sender: FDA-Public Use
  Company Number: US-MTPC-MTDA2019-0041631

PATIENT

DRUGS (3)
  1. RADICAVA [Suspect]
     Active Substance: EDARAVONE
     Indication: AMYOTROPHIC LATERAL SCLEROSIS
     Dosage: 60 MILLIGRAM OVER 60 MIN, DAILY FOR 14 DAYS FOLLOWED BY A 14 DAY DRUG FREE PERIOD
     Route: 042
     Dates: start: 201807
  2. RADICAVA [Suspect]
     Active Substance: EDARAVONE
     Dosage: 60 MILLIGRAM OVER 60 MIN, DAILY FOR 10 DAYS OUT OF 14 DAYS FOLLOWED BY A 14 DAY DRUG FREE PERIOD
     Route: 042
  3. IBUDILAST [Suspect]
     Active Substance: IBUDILAST
     Indication: PRODUCT USED FOR UNKNOWN INDICATION
     Dosage: 30 MILLIGRAM, IN THE MORNING AND IN THE EVENING
     Route: 065
     Dates: start: 20190214, end: 20190321

REACTIONS (1)
  - Dyspnoea [Recovering/Resolving]

NARRATIVE: CASE EVENT DATE: 2019
